FAERS Safety Report 6968527-6 (Version None)
Quarter: 2010Q3

REPORT INFORMATION
  Report Type: 
  Country: None (occurrence: None)
  Receive Date: 20100907
  Receipt Date: 20100826
  Transmission Date: 20110219
  Serious: Yes (Other)
  Sender: FDA-Public Use
  Company Number: BR-PFIZER INC-2010107593

PATIENT
  Sex: Female

DRUGS (1)
  1. GEODON [Suspect]
     Dosage: 80 MG, UNK
     Route: 048
     Dates: start: 20100801, end: 20100825

REACTIONS (6)
  - DEPRESSION [None]
  - FEAR [None]
  - INSOMNIA [None]
  - MALAISE [None]
  - PANIC REACTION [None]
  - TREMOR [None]
